FAERS Safety Report 6092283-X (Version None)
Quarter: 2009Q1

REPORT INFORMATION
  Report Type: 
  Country: None (occurrence: None)
  Receive Date: 20090225
  Receipt Date: 20090220
  Transmission Date: 20090719
  Serious: Yes (Other)
  Sender: FDA-Public Use
  Company Number: B0557966A

PATIENT
  Age: 61 Year
  Sex: Female

DRUGS (6)
  1. RELENZA [Suspect]
     Indication: INFLUENZA
     Dosage: 10MG TWICE PER DAY
     Route: 055
     Dates: start: 20090126, end: 20090128
  2. FLEROXACIN [Concomitant]
     Route: 048
     Dates: start: 20090126, end: 20090128
  3. PONSTEL [Concomitant]
     Route: 048
     Dates: start: 20090126, end: 20090128
  4. DEXTROMETHORPHAN HYDROBROMIDE [Concomitant]
     Route: 048
     Dates: start: 20090126, end: 20090128
  5. SERRAPEPTASE [Concomitant]
     Route: 048
     Dates: start: 20090126, end: 20090128
  6. SOFALCONE [Concomitant]
     Dosage: 3G THREE TIMES PER DAY
     Route: 048
     Dates: start: 20090126, end: 20090128

REACTIONS (1)
  - HALLUCINATION, AUDITORY [None]
